FAERS Safety Report 10158237 (Version 2)
Quarter: 2014Q2

REPORT INFORMATION
  Report Type: Spontaneous
  Country: US (occurrence: US)
  Receive Date: 20140507
  Receipt Date: 20140515
  Transmission Date: 20141212
  Serious: Yes (Death, Hospitalization)
  Sender: FDA-Public Use
  Company Number: US-B.I. PHARMACEUTICALS,INC./RIDGEFIELD-2014-BI-20155BP

PATIENT
  Age: 83 Year
  Sex: Female

DRUGS (7)
  1. PRADAXA [Suspect]
     Indication: ATRIAL FIBRILLATION
     Dosage: 300 MG
     Route: 048
  2. ZANTAC [Concomitant]
     Route: 065
  3. POTASSIUM [Concomitant]
     Route: 065
  4. IMDUR [Concomitant]
     Route: 065
  5. NORCO [Concomitant]
     Route: 065
  6. CYMBALTA [Concomitant]
     Route: 065
  7. PRAZOSIN [Concomitant]
     Route: 065

REACTIONS (2)
  - Shock haemorrhagic [Fatal]
  - Small intestinal haemorrhage [Fatal]
